FAERS Safety Report 21964771 (Version 9)
Quarter: 2023Q4

REPORT INFORMATION
  Report Type: Spontaneous
  Country: US (occurrence: US)
  Receive Date: 20230207
  Receipt Date: 20231130
  Transmission Date: 20240110
  Serious: Yes (Hospitalization)
  Sender: FDA-Public Use
  Company Number: US-KARYOPHARM-2023KPT000359

PATIENT

DRUGS (14)
  1. XPOVIO [Suspect]
     Active Substance: SELINEXOR
     Indication: Plasma cell myeloma
     Dosage: 80 MG, WEEKLY
     Route: 048
     Dates: start: 20230111, end: 202305
  2. XPOVIO [Suspect]
     Active Substance: SELINEXOR
     Dosage: 80 MG, WEEKLY
     Route: 048
     Dates: start: 202305, end: 2023
  3. XPOVIO [Suspect]
     Active Substance: SELINEXOR
     Dosage: 60 MG, WEEKLY
     Route: 048
     Dates: start: 2023
  4. XPOVIO [Suspect]
     Active Substance: SELINEXOR
     Dosage: 40 MG, 3 WEEKS ON 1 WEEK OFF
     Route: 048
     Dates: start: 2023, end: 202309
  5. XPOVIO [Suspect]
     Active Substance: SELINEXOR
     Dosage: 40 MG, WEEKLY
     Route: 048
  6. XPOVIO [Suspect]
     Active Substance: SELINEXOR
     Dosage: 40 MG, WEEKLY
     Route: 048
     Dates: start: 20231111, end: 2023
  7. ACYCLOVIR SODIUM [Concomitant]
     Active Substance: ACYCLOVIR SODIUM
  8. ATORVASTATIN [Concomitant]
     Active Substance: ATORVASTATIN
  9. DARZALEX [Concomitant]
     Active Substance: DARATUMUMAB
  10. DEXAMETHASONE [Concomitant]
     Active Substance: DEXAMETHASONE
  11. FINASTERIDE [Concomitant]
     Active Substance: FINASTERIDE
  12. ONDANSETRON [Concomitant]
     Active Substance: ONDANSETRON
  13. TAMSULOSIN [Concomitant]
     Active Substance: TAMSULOSIN
  14. KYPROLIS [Concomitant]
     Active Substance: CARFILZOMIB

REACTIONS (11)
  - Choking [Unknown]
  - Haemoglobin decreased [Unknown]
  - Somnolence [Not Recovered/Not Resolved]
  - Blood creatinine decreased [Unknown]
  - Full blood count decreased [Unknown]
  - COVID-19 [Unknown]
  - Renal impairment [Not Recovered/Not Resolved]
  - Fatigue [Not Recovered/Not Resolved]
  - Nausea [Unknown]
  - Platelet count decreased [Unknown]
  - Blood creatinine increased [Unknown]

NARRATIVE: CASE EVENT DATE: 20230101
